FAERS Safety Report 21806351 (Version 1)
Quarter: 2023Q1

REPORT INFORMATION
  Report Type: Report from Study
  Country: US (occurrence: US)
  Receive Date: 20230102
  Receipt Date: 20230102
  Transmission Date: 20230418
  Serious: No
  Sender: FDA-Public Use
  Company Number: US-ABBVIE-4223388

PATIENT
  Age: 75 Year
  Sex: Male
  Weight: 125 kg

DRUGS (1)
  1. HUMIRA [Suspect]
     Active Substance: ADALIMUMAB
     Indication: Colitis ulcerative
     Route: 058
     Dates: start: 202204

REACTIONS (5)
  - Diarrhoea [Recovering/Resolving]
  - Salmonellosis [Not Recovered/Not Resolved]
  - Escherichia infection [Not Recovered/Not Resolved]
  - Helicobacter infection [Unknown]
  - Cytogenetic analysis abnormal [Not Recovered/Not Resolved]

NARRATIVE: CASE EVENT DATE: 20221120
